FAERS Safety Report 8070634-4 (Version None)
Quarter: 2012Q1

REPORT INFORMATION
  Report Type: 
  Country: None (occurrence: None)
  Receive Date: 20120125
  Receipt Date: 20120120
  Transmission Date: 20120608
  Serious: Yes (Hospitalization)
  Sender: FDA-Public Use
  Company Number: PHEH2012US001854

PATIENT
  Sex: Female

DRUGS (3)
  1. LIPITOR [Concomitant]
     Dosage: UNK
  2. CLOZARIL [Suspect]
     Dosage: 200 MG
  3. PRILOSEC [Concomitant]
     Dosage: UNK

REACTIONS (8)
  - BLOOD CHOLESTEROL INCREASED [None]
  - DYSPEPSIA [None]
  - DROOLING [None]
  - SPEECH DISORDER [None]
  - DYSPHAGIA [None]
  - BALANCE DISORDER [None]
  - HYPOKINESIA [None]
  - NERVOUS SYSTEM DISORDER [None]
